FAERS Safety Report 4424616-1 (Version None)
Quarter: 2004Q3

REPORT INFORMATION
  Report Type: 
  Country: None (occurrence: None)
  Receive Date: 20040809
  Receipt Date: 20040727
  Transmission Date: 20050211
  Serious: Yes (Death)
  Sender: FDA-Public Use
  Company Number: US-2004-028453

PATIENT
  Age: 65 Year
  Sex: Female
  Weight: 53.5 kg

DRUGS (2)
  1. BETASERON [Suspect]
     Indication: MULTIPLE SCLEROSIS
     Dosage: EVERY 2D, SUBCUTANEOUS
     Route: 058
     Dates: start: 19950412, end: 20031108
  2. LIORESAL [Concomitant]

REACTIONS (2)
  - COLON CANCER STAGE IV [None]
  - METASTASES TO LIVER [None]
